FAERS Safety Report 6825595-X (Version None)
Quarter: 2010Q3

REPORT INFORMATION
  Report Type: 
  Country: None (occurrence: None)
  Receive Date: 20100708
  Receipt Date: 20100202
  Transmission Date: 20110219
  Serious: No
  Sender: FDA-Public Use
  Company Number: US-PFIZER INC-2006130364

PATIENT
  Sex: Female
  Weight: 45.351 kg

DRUGS (3)
  1. CHANTIX [Suspect]
     Indication: SMOKING CESSATION THERAPY
     Dosage: 0.5 MG, 1X/DAY
     Dates: start: 20061015
  2. CYANOCOBALAMIN [Concomitant]
     Dosage: UNK
  3. PRILOSEC [Concomitant]
     Dosage: UNK

REACTIONS (3)
  - DIARRHOEA [None]
  - EMOTIONAL DISTRESS [None]
  - FEELING ABNORMAL [None]
